FAERS Safety Report 16304696 (Version 1)
Quarter: 2019Q2

REPORT INFORMATION
  Report Type: Spontaneous
  Country: CN (occurrence: CN)
  Receive Date: 20190513
  Receipt Date: 20190513
  Transmission Date: 20190711
  Serious: Yes (Other)
  Sender: FDA-Public Use
  Company Number: CN-PFIZER INC-2019198603

PATIENT
  Age: 2 Year
  Sex: Male
  Weight: 12 kg

DRUGS (9)
  1. SULPERAZON [Suspect]
     Active Substance: CEFOPERAZONE SODIUM\SULBACTAM SODIUM
     Indication: PNEUMONIA
     Dosage: 0.55 G, 2X/DAY
     Route: 041
     Dates: start: 20190425, end: 20190503
  2. YI NUO SHU (AMBROXOL HYDROCHLORIDE) [Suspect]
     Active Substance: AMBROXOL HYDROCHLORIDE
     Indication: PNEUMONIA
     Dosage: 7.5 MG, 1X/DAY
     Route: 041
     Dates: start: 20190425, end: 20190503
  3. CALCIUM GLUCONATE. [Suspect]
     Active Substance: CALCIUM GLUCONATE
     Indication: HYPERSENSITIVITY
     Dosage: 1 G, 1X/DAY
     Route: 041
     Dates: start: 20190429, end: 20190503
  4. SODIUM CHLORIDE. [Suspect]
     Active Substance: SODIUM CHLORIDE
     Indication: VEHICLE SOLUTION USE
     Dosage: 50 ML, 2X/DAY
     Route: 041
     Dates: start: 20190425, end: 20190503
  5. GLUCOSE AND SODIUM CHLORIDE [Suspect]
     Active Substance: DEXTROSE\SODIUM CHLORIDE
     Indication: VEHICLE SOLUTION USE
     Dosage: 50 ML, 1X/DAY
     Route: 041
     Dates: start: 20190425, end: 20190503
  6. AZITHROMYCIN ANHYDROUS. [Suspect]
     Active Substance: AZITHROMYCIN ANHYDROUS
     Dosage: 0.11 G, 1X/DAY
     Route: 041
     Dates: start: 20190425, end: 20190503
  7. GLUCOSE INJECTION [Suspect]
     Active Substance: DEXTROSE
     Dosage: 50 ML, 1X/DAY
     Route: 041
     Dates: start: 20190429, end: 20190503
  8. AZITHROMYCIN ANHYDROUS. [Suspect]
     Active Substance: AZITHROMYCIN ANHYDROUS
     Indication: PNEUMONIA
     Dosage: 0.11 G, 1X/DAY
     Route: 041
     Dates: start: 20190425, end: 20190503
  9. GLUCOSE INJECTION [Suspect]
     Active Substance: DEXTROSE
     Indication: VEHICLE SOLUTION USE
     Dosage: 150 ML, 1X/DAY
     Route: 041
     Dates: start: 20190425, end: 20190503

REACTIONS (4)
  - Vomiting [Recovered/Resolved]
  - Pyrexia [Recovered/Resolved]
  - Cyanosis [Recovered/Resolved]
  - Chills [Recovered/Resolved]

NARRATIVE: CASE EVENT DATE: 20190503
